FAERS Safety Report 5088200-1 (Version None)
Quarter: 2006Q3

REPORT INFORMATION
  Report Type: 
  Country: None (occurrence: None)
  Receive Date: 20060727
  Receipt Date: 20060622
  Transmission Date: 20061208
  Serious: Yes (Other)
  Sender: FDA-Public Use
  Company Number: 2006080379

PATIENT
  Age: 49 Year
  Sex: Female
  Weight: 77.1115 kg

DRUGS (6)
  1. LYRICA [Suspect]
     Indication: PAIN MANAGEMENT
     Dosage: 150 MG (75 MG, 2 IN 1 D)
     Route: 065
     Dates: start: 20060418
  2. IBUPROFEN [Suspect]
     Indication: PAIN MANAGEMENT
     Dosage: 1600 MG (800 MG, 2 IN 1 D)
     Route: 065
     Dates: start: 20060418
  3. TOPROL-XL [Concomitant]
  4. TOPAMAX [Concomitant]
  5. OGEN [Concomitant]
  6. LUNESTA [Concomitant]

REACTIONS (7)
  - DISTURBANCE IN ATTENTION [None]
  - DIZZINESS [None]
  - FEELING ABNORMAL [None]
  - HEADACHE [None]
  - NAUSEA [None]
  - OEDEMA PERIPHERAL [None]
  - PERFORMANCE FEAR [None]
